FAERS Safety Report 15091203 (Version 1)
Quarter: 2018Q2

REPORT INFORMATION
  Report Type: Spontaneous
  Country: US (occurrence: US)
  Receive Date: 20180629
  Receipt Date: 20180629
  Transmission Date: 20180711
  Serious: No
  Sender: FDA-Public Use
  Company Number: US-AMGEN-USASP2015039736

PATIENT
  Age: 56 Year
  Sex: Female

DRUGS (1)
  1. PROLIA [Suspect]
     Active Substance: DENOSUMAB
     Indication: OSTEOPOROSIS
     Dosage: UNK
     Route: 065
     Dates: start: 20150411

REACTIONS (18)
  - Pain in extremity [Not Recovered/Not Resolved]
  - Hyperhidrosis [Unknown]
  - Oropharyngeal pain [Recovered/Resolved]
  - Localised infection [Recovered/Resolved]
  - Pharyngeal oedema [Unknown]
  - Lymphadenopathy [Unknown]
  - Hot flush [Unknown]
  - Influenza like illness [Unknown]
  - Throat tightness [Unknown]
  - Erythema [Unknown]
  - Feeling hot [Unknown]
  - Osteoporosis [Unknown]
  - Hypoaesthesia [Unknown]
  - Dizziness [Unknown]
  - Musculoskeletal stiffness [Unknown]
  - Malaise [Unknown]
  - Tenderness [Unknown]
  - Bone density abnormal [Unknown]

NARRATIVE: CASE EVENT DATE: 2015
